FAERS Safety Report 9781502 (Version 1)
Quarter: 2013Q4

REPORT INFORMATION
  Report Type: Spontaneous
  Country: US (occurrence: US)
  Receive Date: 20131224
  Receipt Date: 20131224
  Transmission Date: 20140711
  Serious: No
  Sender: FDA-Public Use
  Company Number: US-BIOGENIDEC-2013BI122419

PATIENT
  Age: 21 Year
  Sex: Female

DRUGS (5)
  1. TECFIDERA [Suspect]
     Indication: MULTIPLE SCLEROSIS
     Route: 048
     Dates: start: 20131024, end: 20131104
  2. TECFIDERA [Suspect]
     Indication: MULTIPLE SCLEROSIS
     Route: 048
     Dates: start: 20131112
  3. LEXAPRO [Concomitant]
  4. VITAMIN C [Concomitant]
  5. VITAMIN D [Concomitant]

REACTIONS (2)
  - Influenza like illness [Recovered/Resolved]
  - Underdose [Unknown]
